FAERS Safety Report 11099645 (Version 3)
Quarter: 2015Q3

REPORT INFORMATION
  Report Type: Other
  Country: IT (occurrence: IT)
  Receive Date: 20150508
  Receipt Date: 20150821
  Transmission Date: 20151125
  Serious: Yes (Death, Hospitalization, Other)
  Sender: FDA-Public Use
  Company Number: IT-MYLANLABS-2015M1014027

PATIENT

DRUGS (10)
  1. CIPROFLOXACINA [Suspect]
     Active Substance: CIPROFLOXACIN
     Indication: PYREXIA
     Dosage: 500 MG, QD
     Route: 048
     Dates: start: 20150319, end: 20150327
  2. CIPROFLOXACINA [Suspect]
     Active Substance: CIPROFLOXACIN
     Indication: PROPHYLAXIS
  3. MYCOSTATIN [Concomitant]
     Active Substance: NYSTATIN
     Indication: PRODUCT USED FOR UNKNOWN INDICATION
     Dosage: 200 MG, UNK
     Route: 048
     Dates: start: 20141220, end: 20150327
  4. EPOETIN ZETA [Concomitant]
     Active Substance: ERYTHROPOIETIN
     Indication: SUPPORTIVE CARE
     Dosage: 40000 IU, UNK
     Route: 058
     Dates: start: 20131010, end: 20150326
  5. FIDATO [Suspect]
     Active Substance: CEFTRIAXONE SODIUM
     Indication: PYREXIA
     Dosage: 1 G, QD
     Route: 030
     Dates: start: 20150321, end: 20150327
  6. BISOPROLOL HEMIFUMARATE [Concomitant]
     Active Substance: BISOPROLOL FUMARATE
     Indication: ESSENTIAL HYPERTENSION
     Dosage: 5 MG, UNK
     Route: 048
  7. SULFAMETHOXAZOLE AND TRIMETHOPRIM [Concomitant]
     Active Substance: SULFAMETHOXAZOLE\TRIMETHOPRIM
     Indication: PROPHYLAXIS
     Dosage: 860 MG, UNK
     Route: 048
  8. ACICLOVIR [Concomitant]
     Active Substance: ACYCLOVIR
     Indication: PROPHYLAXIS
     Dosage: 800 MG, UNK
     Route: 048
     Dates: start: 20120101, end: 20150401
  9. PREDNISONE. [Concomitant]
     Active Substance: PREDNISONE
     Indication: MYELODYSPLASTIC SYNDROME
     Dosage: 25 MG, UNK
     Route: 048
     Dates: start: 20150130, end: 20150327
  10. CALCITRIOL. [Concomitant]
     Active Substance: CALCITRIOL
     Indication: SUPPORTIVE CARE
     Dosage: 0.5 MG, UNK
     Route: 048
     Dates: start: 20120101, end: 20150401

REACTIONS (13)
  - Cough [Fatal]
  - Fatigue [Unknown]
  - Chest pain [Unknown]
  - Loss of consciousness [Unknown]
  - Anaemia [Unknown]
  - Leukopenia [Unknown]
  - Neutropenia [Fatal]
  - Respiratory failure [Unknown]
  - Myocardial infarction [Fatal]
  - Ammonia increased [Unknown]
  - Hyperpyrexia [Fatal]
  - Asthenia [Unknown]
  - Hypertransaminasaemia [Fatal]

NARRATIVE: CASE EVENT DATE: 20150321
